FAERS Safety Report 4390223-2 (Version None)
Quarter: 2004Q2

REPORT INFORMATION
  Report Type: 
  Country: None (occurrence: None)
  Receive Date: 20040630
  Receipt Date: 20040622
  Transmission Date: 20050107
  Serious: Yes (Life-Threatening, Hospitalization)
  Sender: FDA-Public Use
  Company Number: F03200400072

PATIENT
  Age: 52 Year
  Sex: Male

DRUGS (1)
  1. OXALIPLATIN [Suspect]
     Indication: HEPATIC NEOPLASM MALIGNANT
     Dosage: 90 MG/M2 Q3W - INTRA-ARTERIAL
     Route: 013
     Dates: start: 20040524, end: 20040524

REACTIONS (3)
  - GASTRIC ULCER PERFORATION [None]
  - INFREQUENT BOWEL MOVEMENTS [None]
  - INSOMNIA [None]
